FAERS Safety Report 16542206 (Version 1)
Quarter: 2019Q3

REPORT INFORMATION
  Report Type: Spontaneous
  Country: CA (occurrence: CA)
  Receive Date: 20190708
  Receipt Date: 20190708
  Transmission Date: 20191004
  Serious: Yes (Other)
  Sender: FDA-Public Use
  Company Number: CA-009507513-1907CAN002035

PATIENT
  Age: 67 Year
  Sex: Male

DRUGS (1)
  1. KEYTRUDA [Suspect]
     Active Substance: PEMBROLIZUMAB
     Indication: METASTATIC MALIGNANT MELANOMA
     Dosage: UNK
     Dates: start: 2017

REACTIONS (3)
  - Immune-mediated adverse reaction [Recovering/Resolving]
  - Autoimmune haemolytic anaemia [Recovering/Resolving]
  - Pancytopenia [Recovering/Resolving]
